FAERS Safety Report 6510471-2 (Version None)
Quarter: 2009Q4

REPORT INFORMATION
  Report Type: 
  Country: None (occurrence: None)
  Receive Date: 20091221
  Receipt Date: 20091221
  Transmission Date: 20100525
  Serious: Yes (Other)
  Sender: FDA-Public Use
  Company Number: None

PATIENT
  Age: 26 Year
  Sex: Male
  Weight: 80.2867 kg

DRUGS (1)
  1. CEPHALEXIN [Suspect]
     Indication: IMPETIGO
     Dosage: 500MG 12 HOURS PO   /   72 HRS -3000MG TOTAL-
     Route: 048
     Dates: start: 20091215, end: 20091218

REACTIONS (2)
  - PRURITUS [None]
  - RASH ERYTHEMATOUS [None]
